FAERS Safety Report 7590984-5 (Version None)
Quarter: 2011Q3

REPORT INFORMATION
  Report Type: 
  Country: None (occurrence: None)
  Receive Date: 20110705
  Receipt Date: 20110630
  Transmission Date: 20111222
  Serious: Yes (Other)
  Sender: FDA-Public Use
  Company Number: PHHY2011DE45598

PATIENT
  Age: 11 Year
  Sex: Male

DRUGS (1)
  1. RITALIN LA [Suspect]
     Indication: PSYCHOMOTOR HYPERACTIVITY
     Dosage: 30 MG, QD
     Route: 048
     Dates: start: 20090319

REACTIONS (2)
  - DEAFNESS [None]
  - BLOOD PRESSURE INCREASED [None]
